FAERS Safety Report 9433640 (Version 3)
Quarter: 2013Q3

REPORT INFORMATION
  Report Type: Spontaneous
  Country: JP (occurrence: JP)
  Receive Date: 20130731
  Receipt Date: 20130814
  Transmission Date: 20140515
  Serious: No
  Sender: FDA-Public Use
  Company Number: JP-PFIZER INC-2013222758

PATIENT
  Age: 52 Year
  Sex: Male

DRUGS (2)
  1. CELECOX [Suspect]
     Indication: SPONDYLITIC MYELOPATHY
     Dosage: 100 MG, 3X/DAY
     Route: 048
  2. CELECOX [Suspect]
     Dosage: 100 MG, 2X/DAY
     Route: 048

REACTIONS (1)
  - Therapeutic response decreased [Unknown]
